FAERS Safety Report 4341879-1 (Version None)
Quarter: 2004Q2

REPORT INFORMATION
  Report Type: 
  Country: None (occurrence: None)
  Receive Date: 20040415
  Receipt Date: 20040406
  Transmission Date: 20050107
  Serious: Yes (Hospitalization)
  Sender: FDA-Public Use
  Company Number: USA040363335

PATIENT
  Age: 49 Year
  Sex: Male

DRUGS (2)
  1. ZYPREXA [Suspect]
     Indication: BIPOLAR DISORDER
     Dosage: 45 MG DAY
  2. DEPAKOATE (VALPROATE SEMISODIUM) [Concomitant]

REACTIONS (2)
  - MANIA [None]
  - TREATMENT NONCOMPLIANCE [None]
